FAERS Safety Report 16568484 (Version 1)
Quarter: 2019Q3

REPORT INFORMATION
  Report Type: Spontaneous
  Country: RU (occurrence: RU)
  Receive Date: 20190712
  Receipt Date: 20190712
  Transmission Date: 20191004
  Serious: Yes (Other)
  Sender: FDA-Public Use
  Company Number: PHHY2019RU159404

PATIENT

DRUGS (9)
  1. 5-FLUOROURACIL [Suspect]
     Active Substance: FLUOROURACIL
     Dosage: 400 MG/M2, UNK (ON DAY 1 OF 14 DAYS CYCLE CYCLE/ 48 HOUR INFUSION)
     Route: 041
  2. 5-FLUOROURACIL [Suspect]
     Active Substance: FLUOROURACIL
     Dosage: 2000 MG/M2, UNK (ON DAY 1 OF 14 DAYS CYCLE CYCLE/ 48 HOUR INFUSION)
     Route: 041
  3. OXALIPLATIN. [Suspect]
     Active Substance: OXALIPLATIN
     Indication: HER-2 POSITIVE GASTRIC CANCER
     Dosage: 85 MG/M2, UNK (ON DAY 1 OF 14 DAYS CYCLE)
     Route: 065
  4. LEUCOVORIN. [Concomitant]
     Active Substance: LEUCOVORIN
     Indication: HER-2 POSITIVE GASTRIC CANCER
     Dosage: 400 MG, UNK(ON DAY 1 OF 14 DAYS CYCLE)
     Route: 042
  5. 5-FLUOROURACIL [Suspect]
     Active Substance: FLUOROURACIL
     Indication: HER-2 POSITIVE GASTRIC CANCER
     Dosage: 2600 MG/M2, UNK(ON DAY 1 OF 14 DAYS CYCLE)
     Route: 041
  6. DOCETAXEL. [Suspect]
     Active Substance: DOCETAXEL
     Indication: HER-2 POSITIVE GASTRIC CANCER
     Dosage: 50 MG/M2, UNK (ON DAY 1 OF 14 DAYS CYCLE)
     Route: 065
  7. DOCETAXEL. [Suspect]
     Active Substance: DOCETAXEL
     Dosage: 40 MG/M2,UNK (ON DAY 1 OF 14 DAYS CYCLE)
     Route: 065
  8. CISPLATIN. [Suspect]
     Active Substance: CISPLATIN
     Indication: HER-2 POSITIVE GASTRIC CANCER
     Dosage: 40 MG/M2, UNK (ON DAY 2 OR 3 OF 14 DAYS CYCLE)
     Route: 065
  9. TRASTUZUMAB. [Concomitant]
     Active Substance: TRASTUZUMAB
     Indication: HER-2 POSITIVE GASTRIC CANCER
     Route: 065

REACTIONS (2)
  - Cardiotoxicity [Unknown]
  - Product use in unapproved indication [Unknown]
